FAERS Safety Report 25790376 (Version 2)
Quarter: 2025Q3

REPORT INFORMATION
  Report Type: Spontaneous
  Country: CH (occurrence: CH)
  Receive Date: 20250911
  Receipt Date: 20250926
  Transmission Date: 20251020
  Serious: Yes (Other)
  Sender: RANBAXY
  Company Number: CH-SUN PHARMACEUTICAL INDUSTRIES LTD-2025R1-526581

PATIENT
  Sex: Male
  Weight: 0.78 kg

DRUGS (1)
  1. INDOMETHACIN [Suspect]
     Active Substance: INDOMETHACIN
     Indication: Tocolysis
     Route: 064

REACTIONS (3)
  - Foetal exposure during pregnancy [Unknown]
  - Premature baby [Unknown]
  - Low birth weight baby [Unknown]
